FAERS Safety Report 11200861 (Version 2)
Quarter: 2015Q3

REPORT INFORMATION
  Report Type: Spontaneous
  Country: US (occurrence: US)
  Receive Date: 20150618
  Receipt Date: 20150707
  Transmission Date: 20151125
  Serious: Yes (Other)
  Sender: FDA-Public Use
  Company Number: US-GLAXOSMITHKLINE-US2015GSK085926

PATIENT
  Sex: Male
  Weight: 100.8 kg

DRUGS (16)
  1. ARZERRA [Suspect]
     Active Substance: OFATUMUMAB
     Dosage: 1000 MG, CYC
     Route: 042
     Dates: start: 20150406, end: 20150603
  2. ARZERRA [Suspect]
     Active Substance: OFATUMUMAB
     Dosage: 1000 MG, CYC
     Route: 042
     Dates: start: 20150603, end: 20150603
  3. DECADRON [Concomitant]
     Active Substance: DEXAMETHASONE
  4. GLIMEPIRIDE. [Concomitant]
     Active Substance: GLIMEPIRIDE
  5. BENADRYL [Concomitant]
     Active Substance: DIPHENHYDRAMINE HYDROCHLORIDE
  6. PRAVASTATIN [Concomitant]
     Active Substance: PRAVASTATIN\PRAVASTATIN SODIUM
  7. DICLOFENAC [Concomitant]
     Active Substance: DICLOFENAC
  8. LISINOPRIL. [Concomitant]
     Active Substance: LISINOPRIL
  9. TYLENOL [Concomitant]
     Active Substance: ACETAMINOPHEN
  10. ARZERRA [Suspect]
     Active Substance: OFATUMUMAB
     Indication: CHRONIC LYMPHOCYTIC LEUKAEMIA
     Dosage: 300 MG, CYC
     Route: 042
     Dates: start: 20150309, end: 20150603
  11. PAROXETINE [Concomitant]
     Active Substance: PAROXETINE\PAROXETINE HYDROCHLORIDE
  12. ZOFRAN [Concomitant]
     Active Substance: ONDANSETRON HYDROCHLORIDE
  13. ARZERRA [Suspect]
     Active Substance: OFATUMUMAB
     Dosage: 1000 MG, CYC
     Route: 042
     Dates: start: 20150316, end: 20150603
  14. ARZERRA [Suspect]
     Active Substance: OFATUMUMAB
     Dosage: 1000 MG, CYC
     Route: 042
     Dates: start: 20150506, end: 20150603
  15. ALLOPURINOL. [Concomitant]
     Active Substance: ALLOPURINOL
  16. PEPCID [Concomitant]
     Active Substance: FAMOTIDINE

REACTIONS (6)
  - Headache [Unknown]
  - Nausea [Recovered/Resolved]
  - Body temperature decreased [Recovered/Resolved]
  - Blood pressure decreased [Recovered/Resolved]
  - Heart rate decreased [Recovered/Resolved]
  - Feeling hot [Recovered/Resolved]
